FAERS Safety Report 24024925 (Version 2)
Quarter: 2024Q3

REPORT INFORMATION
  Report Type: Report from Study
  Country: RU (occurrence: RU)
  Receive Date: 20240628
  Receipt Date: 20240710
  Transmission Date: 20241017
  Serious: No
  Sender: ROCHE
  Company Number: RU-ROCHE-3328525

PATIENT
  Age: 40 Year
  Sex: Female
  Weight: 45.0 kg

DRUGS (7)
  1. ALECTINIB [Suspect]
     Active Substance: ALECTINIB
     Indication: Non-small cell lung cancer metastatic
     Dosage: PRIOR INFUSION WAS DONE ON 15/SEP/2020, 600MG,TWICE A DAY
     Route: 048
     Dates: start: 20210527
  2. ZOLEDRONIC ACID [Suspect]
     Active Substance: ZOLEDRONIC ACID
     Indication: Metastases to bone
     Route: 042
     Dates: start: 202009, end: 202302
  3. AZITHROMYCIN [Concomitant]
     Active Substance: AZITHROMYCIN
     Route: 048
     Dates: start: 20230908, end: 20230912
  4. FERRUM LEK [Concomitant]
     Indication: Anaemia
     Route: 048
     Dates: start: 20240109
  5. PARAPLATIN [Concomitant]
     Active Substance: CARBOPLATIN
     Indication: Metastasis
     Dates: start: 20240313, end: 20240313
  6. PEMETREXED [Concomitant]
     Active Substance: PEMETREXED
     Indication: Metastasis
     Dates: start: 20240313, end: 20240313
  7. CARBOPLATIN [Concomitant]
     Active Substance: CARBOPLATIN
     Dates: start: 20240313, end: 20240313

REACTIONS (1)
  - Osteonecrosis of jaw [Recovering/Resolving]

NARRATIVE: CASE EVENT DATE: 20230212
